FAERS Safety Report 10441342 (Version 1)
Quarter: 2014Q3

REPORT INFORMATION
  Report Type: Spontaneous
  Country: US (occurrence: None)
  Receive Date: 20140908
  Receipt Date: 20140908
  Transmission Date: 20150326
  Serious: Yes (Disabling)
  Sender: FDA-Public Use
  Company Number: None

PATIENT
  Age: 57 Year
  Sex: Female
  Weight: 141.52 kg

DRUGS (13)
  1. LORAZEPAM. [Concomitant]
     Active Substance: LORAZEPAM
  2. PANCREATIN [Concomitant]
     Active Substance: PANCRELIPASE
  3. HYDROCHLOROTHAIZEIDE [Concomitant]
  4. VITAMIN E [Concomitant]
     Active Substance: .ALPHA.-TOCOPHEROL
  5. BUPROPION HCL ER XL [Concomitant]
  6. BUPROPION ER XL TB24 [Concomitant]
  7. CELEBREX [Concomitant]
     Active Substance: CELECOXIB
  8. BOTTLE WATER [Concomitant]
  9. CELEBREX [Concomitant]
     Active Substance: CELECOXIB
  10. ZYPREXA [Suspect]
     Active Substance: OLANZAPINE
     Indication: BIPOLAR DISORDER
     Route: 048
     Dates: start: 20140801
  11. OMEPRAZOLE. [Concomitant]
     Active Substance: OMEPRAZOLE
  12. RANITIDINE HCL [Concomitant]
     Active Substance: RANITIDINE HYDROCHLORIDE
  13. OMPERAZALE [Concomitant]

REACTIONS (14)
  - Somnolence [None]
  - Back pain [None]
  - Arthralgia [None]
  - Nervousness [None]
  - Musculoskeletal stiffness [None]
  - Headache [None]
  - Pain [None]
  - Muscle spasms [None]
  - Memory impairment [None]
  - Pain in extremity [None]
  - Peripheral swelling [None]
  - Nasal congestion [None]
  - Stress [None]
  - Ear pain [None]

NARRATIVE: CASE EVENT DATE: 20140811
